FAERS Safety Report 4337299-6 (Version None)
Quarter: 2004Q2

REPORT INFORMATION
  Report Type: 
  Country: None (occurrence: None)
  Receive Date: 20040412
  Receipt Date: 20040412
  Transmission Date: 20050107
  Serious: Yes (Hospitalization)
  Sender: FDA-Public Use
  Company Number: None

PATIENT
  Age: 75 Year
  Sex: Female
  Weight: 68.0396 kg

DRUGS (3)
  1. CISPLATIN [Suspect]
     Indication: CARCINOMA
     Dosage: 100 MG/M2 IV
     Route: 042
     Dates: start: 20030224
  2. CISPLATIN [Suspect]
     Indication: CARCINOMA
     Dosage: 100 MG/M2 IV
     Route: 042
     Dates: start: 20030317
  3. CISPLATIN [Suspect]
     Indication: CARCINOMA
     Dosage: 100 MG/M2 IV
     Route: 042
     Dates: start: 20030421

REACTIONS (2)
  - NAUSEA [None]
  - VOMITING [None]
